FAERS Safety Report 9277248 (Version 2)
Quarter: 2013Q2

REPORT INFORMATION
  Report Type: Spontaneous
  Country: US (occurrence: US)
  Receive Date: 20130508
  Receipt Date: 20130523
  Transmission Date: 20140414
  Serious: Yes (Hospitalization)
  Sender: FDA-Public Use
  Company Number: US-ROCHE-1222097

PATIENT
  Age: 83 Year
  Sex: Female

DRUGS (8)
  1. AVASTIN [Suspect]
     Indication: AGE-RELATED MACULAR DEGENERATION
     Route: 031
     Dates: start: 20121226
  2. AVASTIN [Suspect]
     Indication: OFF LABEL USE
  3. METFORMIN [Concomitant]
     Indication: TYPE 2 DIABETES MELLITUS
     Route: 048
  4. LABETALOL [Concomitant]
     Indication: BLOOD PRESSURE
     Route: 048
  5. BENICAR [Concomitant]
     Indication: BLOOD PRESSURE
     Route: 048
  6. SIMVASTATIN [Concomitant]
     Indication: BLOOD CHOLESTEROL INCREASED
     Route: 048
  7. ASA, BABY [Concomitant]
     Route: 048
  8. TRAMADOL [Concomitant]
     Indication: BACK PAIN
     Route: 048

REACTIONS (4)
  - Convulsion [Recovered/Resolved]
  - Vomiting [Recovered/Resolved]
  - Headache [Recovered/Resolved]
  - Blood pressure increased [Recovered/Resolved]
